FAERS Safety Report 4950019-7 (Version None)
Quarter: 2006Q1

REPORT INFORMATION
  Report Type: 
  Country: None (occurrence: None)
  Receive Date: 20060315
  Receipt Date: 20060227
  Transmission Date: 20060701
  Serious: Yes (Death, Other)
  Sender: FDA-Public Use
  Company Number: JP200602001999

PATIENT
  Age: 70 Year
  Sex: Female
  Weight: 63 kg

DRUGS (3)
  1. GEMZAR [Suspect]
     Indication: PANCREATIC CARCINOMA STAGE IV
     Dosage: 800 MG, OTHER, INTRAVENOUS; 1000 MG, OTHER, INTRAVENOUS;  1200 MG, OTHER, INTRAVENOUS
     Route: 042
     Dates: start: 20060104, end: 20060104
  2. GEMZAR [Suspect]
     Indication: PANCREATIC CARCINOMA STAGE IV
     Dosage: 800 MG, OTHER, INTRAVENOUS; 1000 MG, OTHER, INTRAVENOUS;  1200 MG, OTHER, INTRAVENOUS
     Route: 042
     Dates: start: 20060111, end: 20060111
  3. GEMZAR [Suspect]
     Indication: PANCREATIC CARCINOMA STAGE IV
     Dosage: 800 MG, OTHER, INTRAVENOUS; 1000 MG, OTHER, INTRAVENOUS;  1200 MG, OTHER, INTRAVENOUS
     Route: 042
     Dates: start: 20060118

REACTIONS (12)
  - ATELECTASIS [None]
  - BLOOD FIBRINOGEN INCREASED [None]
  - BLOOD PRESSURE DECREASED [None]
  - BONE MARROW FAILURE [None]
  - DISSEMINATED INTRAVASCULAR COAGULATION [None]
  - FLUID INTAKE REDUCED [None]
  - NAUSEA [None]
  - PNEUMONIA [None]
  - RHINORRHOEA [None]
  - SEPSIS [None]
  - VOMITING [None]
  - WHITE BLOOD CELL COUNT DECREASED [None]
